FAERS Safety Report 10869905 (Version 2)
Quarter: 2015Q1

REPORT INFORMATION
  Report Type: Spontaneous
  Country: US (occurrence: US)
  Receive Date: 20150226
  Receipt Date: 20150303
  Transmission Date: 20150721
  Serious: No
  Sender: FDA-Public Use
  Company Number: US-PFIZER INC-2015066774

PATIENT
  Age: 54 Year
  Sex: Female
  Weight: 70 kg

DRUGS (2)
  1. ZOLOFT [Suspect]
     Active Substance: SERTRALINE HYDROCHLORIDE
     Indication: MAJOR DEPRESSION
     Dosage: 50 MG, UNK
  2. ZOLOFT [Suspect]
     Active Substance: SERTRALINE HYDROCHLORIDE
     Indication: MAJOR DEPRESSION
     Dosage: 25 MG, DAILY
     Route: 048
     Dates: start: 201502

REACTIONS (21)
  - Agitation [Unknown]
  - Constipation [Unknown]
  - Nausea [Unknown]
  - Impaired healing [Unknown]
  - Dysphonia [Recovering/Resolving]
  - Disturbance in attention [Unknown]
  - Condition aggravated [Unknown]
  - Anxiety [Unknown]
  - Facial pain [Unknown]
  - Reaction to drug excipients [Unknown]
  - Dyskinesia [Unknown]
  - Crying [Unknown]
  - Abnormal dreams [Unknown]
  - Hyperhidrosis [Unknown]
  - Negative thoughts [Unknown]
  - Dysphagia [Recovering/Resolving]
  - Rash [Not Recovered/Not Resolved]
  - Pruritus [Not Recovered/Not Resolved]
  - Headache [Recovering/Resolving]
  - Insomnia [Unknown]
  - Epistaxis [Recovered/Resolved]

NARRATIVE: CASE EVENT DATE: 201502
